FAERS Safety Report 13260196 (Version 2)
Quarter: 2017Q2

REPORT INFORMATION
  Report Type: Spontaneous
  Country: US (occurrence: US)
  Receive Date: 20170222
  Receipt Date: 20170621
  Transmission Date: 20170830
  Serious: Yes (Other)
  Sender: FDA-Public Use
  Company Number: US-PFIZER INC-2017072236

PATIENT
  Age: 59 Year
  Sex: Male
  Weight: 111 kg

DRUGS (1)
  1. SOMAVERT [Suspect]
     Active Substance: PEGVISOMANT
     Indication: BLOOD GROWTH HORMONE INCREASED
     Dosage: UNK
     Dates: start: 2015

REACTIONS (1)
  - Pituitary tumour recurrent [Recovered/Resolved]
